FAERS Safety Report 14562169 (Version 1)
Quarter: 2018Q1

REPORT INFORMATION
  Report Type: Spontaneous
  Country: RO (occurrence: RO)
  Receive Date: 20180222
  Receipt Date: 20180222
  Transmission Date: 20180509
  Serious: Yes (Other)
  Sender: FDA-Public Use
  Company Number: RO-B.I. PHARMACEUTICALS,INC./RIDGEFIELD-2016-BI-068585

PATIENT
  Age: 64 Year
  Sex: Female

DRUGS (3)
  1. REVATIO (SILDENAFIL) [Concomitant]
     Indication: PULMONARY ARTERIAL HYPERTENSION
     Route: 065
  2. PRADAXA [Suspect]
     Active Substance: DABIGATRAN ETEXILATE MESYLATE
     Indication: ATRIAL FIBRILLATION
     Route: 048
     Dates: start: 20150815
  3. PRADAXA [Suspect]
     Active Substance: DABIGATRAN ETEXILATE MESYLATE
     Route: 048
     Dates: start: 201610

REACTIONS (7)
  - Dizziness [Unknown]
  - Chills [Unknown]
  - Cardiac discomfort [Unknown]
  - Pain [Unknown]
  - Headache [Unknown]
  - Syncope [Unknown]
  - Asthenia [Unknown]

NARRATIVE: CASE EVENT DATE: 20161018
